FAERS Safety Report 6766720-9 (Version None)
Quarter: 2010Q2

REPORT INFORMATION
  Report Type: 
  Country: None (occurrence: None)
  Receive Date: 20100609
  Receipt Date: 20100527
  Transmission Date: 20101027
  Serious: Yes (Congenital Anomaly)
  Sender: FDA-Public Use
  Company Number: 028-20484-09030205

PATIENT
  Sex: Male
  Weight: 3.632 kg

DRUGS (3)
  1. INNOHEP [Suspect]
     Indication: DRUG EXPOSURE DURING PREGNANCY
     Dates: start: 20031125, end: 20040331
  2. INNOHEP [Suspect]
     Indication: DRUG EXPOSURE DURING PREGNANCY
     Dates: start: 20040331, end: 20040629
  3. HEPARIN [Concomitant]

REACTIONS (3)
  - CAESAREAN SECTION [None]
  - CONGENITAL SPINAL CORD ANOMALY [None]
  - MATERNAL DRUGS AFFECTING FOETUS [None]
